FAERS Safety Report 5919679-8 (Version None)
Quarter: 2008Q4

REPORT INFORMATION
  Report Type: 
  Country: None (occurrence: None)
  Receive Date: 20081015
  Receipt Date: 20081002
  Transmission Date: 20090506
  Serious: Yes (Life-Threatening, Hospitalization, Other)
  Sender: FDA-Public Use
  Company Number: JP-ABBOTT-08P-087-0474694-00

PATIENT
  Age: 79 Year
  Sex: Male

DRUGS (14)
  1. LEUPROLIDE ACETATE [Suspect]
     Indication: PROSTATE CANCER STAGE II
     Route: 058
     Dates: start: 20060721, end: 20080411
  2. ETHYL ICOSAPENTATE [Concomitant]
     Indication: CEREBRAL INFARCTION
     Route: 048
     Dates: end: 20070116
  3. LOSARTAN POTASSIUM [Concomitant]
     Indication: HYPERTENSION
     Route: 048
  4. ACETYLSALICYLIC ACID SRT [Concomitant]
     Indication: MYOCARDIAL INFARCTION
     Route: 048
  5. TICLOPIDINE HYDROCHLORIDE [Concomitant]
     Indication: MYOCARDIAL INFARCTION
     Route: 048
  6. TICLOPIDINE HYDROCHLORIDE [Concomitant]
     Route: 048
     Dates: start: 20061211, end: 20070116
  7. ACARBOSE [Concomitant]
     Indication: DIABETES MELLITUS
     Route: 048
  8. ACARBOSE [Concomitant]
     Route: 048
     Dates: start: 20061216, end: 20070125
  9. GLIMEPIRIDE [Concomitant]
     Indication: DIABETES MELLITUS
     Route: 048
  10. GLIMEPIRIDE [Concomitant]
     Dates: start: 20061216, end: 20070125
  11. ISOSORBIDE MONONITRATE [Concomitant]
     Indication: MYOCARDIAL INFARCTION
     Route: 048
  12. CARVEDILOL [Concomitant]
     Indication: CARDIAC FAILURE
     Route: 048
  13. INSULIN HUMAN [Concomitant]
     Indication: DIABETES MELLITUS
     Route: 058
     Dates: start: 20070125
  14. FUROSEMIDE [Concomitant]
     Indication: CARDIAC FAILURE

REACTIONS (4)
  - CARDIAC FAILURE [None]
  - DECUBITUS ULCER [None]
  - DIABETES MELLITUS [None]
  - MYOCARDIAL INFARCTION [None]
